FAERS Safety Report 9626533 (Version 4)
Quarter: 2014Q2

REPORT INFORMATION
  Report Type: Report from Study
  Country: KR (occurrence: KR)
  Receive Date: 20131016
  Receipt Date: 20140617
  Transmission Date: 20141212
  Serious: Yes (Hospitalization)
  Sender: FDA-Public Use
  Company Number: KR-EISAI INC-E7389-04270-CLI-KR

PATIENT
  Age: 58 Year
  Sex: Female
  Weight: 53 kg

DRUGS (3)
  1. ERIBULIN [Suspect]
     Indication: BREAST CANCER
     Dosage: 2.1 MG
     Route: 041
     Dates: start: 20131001, end: 20131001
  2. CALTRATE 400+D [Concomitant]
     Indication: PRODUCT USED FOR UNKNOWN INDICATION
     Route: 048
     Dates: start: 20130409
  3. LECITHIN IODINE 100 [Concomitant]
     Indication: PRODUCT USED FOR UNKNOWN INDICATION
     Route: 048
     Dates: start: 20120626

REACTIONS (1)
  - Ascites [Recovered/Resolved]
